FAERS Safety Report 10494882 (Version 1)
Quarter: 2014Q4

REPORT INFORMATION
  Report Type: Spontaneous
  Country: US (occurrence: None)
  Receive Date: 20141001
  Receipt Date: 20141001
  Transmission Date: 20150528
  Serious: Yes (Hospitalization, Other)
  Sender: FDA-Public Use
  Company Number: 2014PAC00042

PATIENT
  Age: 44 Year
  Sex: Female

DRUGS (3)
  1. ATENOLOL (ATENOLOL) UNKNOWN [Suspect]
     Active Substance: ATENOLOL
     Route: 048
  2. LISINOPRIL (LISINOPRIL) [Suspect]
     Active Substance: LISINOPRIL
     Route: 048
  3. CHLORTHALIDONE (CHLORTALIDONE) [Suspect]
     Active Substance: CHLORTHALIDONE
     Route: 048

REACTIONS (13)
  - Circulatory collapse [None]
  - Renal failure [None]
  - Overdose [None]
  - Cardiotoxicity [None]
  - Mental status changes [None]
  - Hypotension [None]
  - Shock [None]
  - Acute respiratory distress syndrome [None]
  - Unresponsive to stimuli [None]
  - Diastolic dysfunction [None]
  - Coma [None]
  - Peripheral pulse decreased [None]
  - Bradycardia [None]
